FAERS Safety Report 7552402-2 (Version None)
Quarter: 2011Q2

REPORT INFORMATION
  Report Type: 
  Country: None (occurrence: None)
  Receive Date: 20110616
  Receipt Date: 20110411
  Transmission Date: 20111010
  Serious: Yes (Hospitalization)
  Sender: FDA-Public Use
  Company Number: PHHY2011ES45184

PATIENT
  Age: 84 Year
  Sex: Male

DRUGS (6)
  1. ASPIRIN [Concomitant]
     Indication: PROPHYLAXIS
     Dosage: 100 MG DAILY
     Route: 048
     Dates: start: 20070101
  2. HYDROCHLOROTHIAZIDE [Suspect]
     Indication: HYPERTENSION
     Dosage: 160 MG DAILY
     Route: 048
     Dates: start: 20070101, end: 20100226
  3. LERCANIDIPINE [Suspect]
     Indication: HYPERTENSION
     Dosage: 5 MG DAILY
     Route: 048
     Dates: start: 20070101, end: 20100226
  4. IDALPREM [Concomitant]
     Dosage: 1 MG DAILY
     Route: 048
     Dates: start: 20070401, end: 20100226
  5. GENTAMICIN [Suspect]
     Indication: PROPHYLAXIS
     Dosage: UNK
     Dates: start: 20100211, end: 20100212
  6. ANAGASTRA [Concomitant]
     Dosage: 20 MG DAILY
     Route: 048
     Dates: end: 20100226

REACTIONS (9)
  - ACUTE VESTIBULAR SYNDROME [None]
  - VOMITING [None]
  - BLOOD POTASSIUM INCREASED [None]
  - DECREASED APPETITE [None]
  - DRUG INTERACTION [None]
  - NAUSEA [None]
  - BLOOD CREATININE INCREASED [None]
  - RENAL FAILURE ACUTE [None]
  - BLOOD SODIUM INCREASED [None]
